FAERS Safety Report 5315809-X (Version None)
Quarter: 2007Q2

REPORT INFORMATION
  Report Type: 
  Country: None (occurrence: None)
  Receive Date: 20070503
  Receipt Date: 20070427
  Transmission Date: 20071010
  Serious: Yes (Other)
  Sender: FDA-Public Use
  Company Number: AU-GLAXOSMITHKLINE-B0465667A

PATIENT
  Age: 3 Year
  Sex: Male

DRUGS (2)
  1. FLIXOTIDE [Suspect]
     Indication: ASTHMA
     Route: 055
     Dates: start: 20060801
  2. VENTOLIN [Suspect]
     Indication: ASTHMA
     Route: 055
     Dates: start: 20060501

REACTIONS (2)
  - ASTHMA [None]
  - DRUG ADMINISTRATION ERROR [None]
